FAERS Safety Report 13776659 (Version 1)
Quarter: 2017Q3

REPORT INFORMATION
  Report Type: Report from Study
  Country: US (occurrence: US)
  Receive Date: 20170720
  Receipt Date: 20170720
  Transmission Date: 20171127
  Serious: No
  Sender: FDA-Public Use
  Company Number: US-CELGENEUS-USA-20170703606

PATIENT
  Sex: Female

DRUGS (2)
  1. OTEZLA [Suspect]
     Active Substance: APREMILAST
     Indication: APHTHOUS ULCER
     Route: 048
  2. OTEZLA [Suspect]
     Active Substance: APREMILAST
     Indication: OFF LABEL USE

REACTIONS (1)
  - Gastrointestinal disorder [Recovered/Resolved]
